FAERS Safety Report 6471117-5 (Version None)
Quarter: 2009Q4

REPORT INFORMATION
  Report Type: 
  Country: None (occurrence: None)
  Receive Date: 20091203
  Receipt Date: 20091201
  Transmission Date: 20100525
  Serious: Yes (Death)
  Sender: FDA-Public Use
  Company Number: PHHY2009DE52834

PATIENT
  Age: 45 Year
  Sex: Male

DRUGS (3)
  1. DAFIRO [Suspect]
     Dosage: UNK
     Route: 048
     Dates: start: 20091123
  2. ICANDRA [Suspect]
     Dosage: UNK
     Route: 048
     Dates: start: 20091123
  3. ASPIRIN [Concomitant]

REACTIONS (1)
  - DEATH [None]
